FAERS Safety Report 13535345 (Version 1)
Quarter: 2017Q2

REPORT INFORMATION
  Report Type: Spontaneous
  Country: FR (occurrence: FR)
  Receive Date: 20170511
  Receipt Date: 20170511
  Transmission Date: 20170830
  Serious: Yes (Hospitalization)
  Sender: FDA-Public Use
  Company Number: FR-PFIZER INC-2017197892

PATIENT
  Age: 67 Year
  Sex: Female

DRUGS (9)
  1. PERINDOPRIL [Suspect]
     Active Substance: PERINDOPRIL
     Indication: HYPERTENSION
     Dosage: 2 MG, DAILY
     Route: 048
  2. INEXIUM [Suspect]
     Active Substance: ESOMEPRAZOLE
     Indication: GASTROOESOPHAGEAL REFLUX DISEASE
     Dosage: 20 MG, DAILY
     Route: 048
  3. CORTANCYL [Suspect]
     Active Substance: PREDNISONE
     Indication: RHEUMATOID ARTHRITIS
     Dosage: 20 MG, DAILY
     Route: 048
  4. FLUOXETINE HYDROCHLORIDE. [Suspect]
     Active Substance: FLUOXETINE HYDROCHLORIDE
     Indication: DEPRESSION
     Dosage: 20 MG, DAILY
     Route: 048
  5. LYRICA [Suspect]
     Active Substance: PREGABALIN
     Indication: NEURALGIA
     Dosage: 75 MG, DAILY
     Route: 048
     Dates: start: 2015
  6. KARDEGIC [Suspect]
     Active Substance: ASPIRIN LYSINE
     Indication: CEREBROVASCULAR ACCIDENT
     Dosage: 75 MG, DAILY
     Route: 048
  7. XARELTO [Suspect]
     Active Substance: RIVAROXABAN
     Indication: PULMONARY EMBOLISM
     Dosage: 20 MG, DAILY
     Route: 048
     Dates: start: 20160224, end: 20170301
  8. SPECIAFOLDINE [Concomitant]
     Active Substance: FOLIC ACID
     Dosage: 5 MG, WEEKLY
  9. NOVATREX NOS [Suspect]
     Active Substance: AZITHROMYCIN OR METHOTREXATE SODIUM
     Indication: RHEUMATOID ARTHRITIS
     Dosage: 15 MG, WEEKLY
     Route: 048
     Dates: end: 20170301

REACTIONS (1)
  - Normochromic normocytic anaemia [Recovering/Resolving]

NARRATIVE: CASE EVENT DATE: 20170301
